FAERS Safety Report 7810511-4 (Version None)
Quarter: 2011Q4

REPORT INFORMATION
  Report Type: 
  Country: None (occurrence: None)
  Receive Date: 20111012
  Receipt Date: 20111005
  Transmission Date: 20120403
  Serious: Yes (Hospitalization, Other)
  Sender: FDA-Public Use
  Company Number: CELGENEUS-087-21880-11012565

PATIENT
  Sex: Male

DRUGS (15)
  1. ISENTRESS [Concomitant]
     Indication: HIV INFECTION
     Dosage: 800 MILLIGRAM
     Route: 048
     Dates: start: 20110119
  2. REVLIMID [Suspect]
     Indication: MULTIPLE MYELOMA
     Dosage: 25 MILLIGRAM
     Route: 048
     Dates: start: 20110119, end: 20110123
  3. REBAMIPIDE [Concomitant]
     Dosage: 200 MILLIGRAM
     Route: 048
     Dates: start: 20110119
  4. DEXAMETHASONE [Suspect]
     Indication: MULTIPLE MYELOMA
     Dosage: 40 MILLIGRAM
     Route: 048
     Dates: start: 20110119, end: 20110121
  5. ASPIRIN [Concomitant]
     Dosage: 100 MILLIGRAM
     Route: 065
  6. METHYCOBAL [Concomitant]
     Dosage: 1500 MICROGRAM
     Route: 048
     Dates: start: 20110119
  7. REVLIMID [Suspect]
     Dosage: 10 MILLIGRAM
     Route: 048
     Dates: start: 20110215
  8. ACYCLOVIR [Concomitant]
     Indication: PROPHYLAXIS
     Dosage: 200 MILLIGRAM
     Route: 048
     Dates: start: 20110119
  9. LANSOPRAZOLE [Concomitant]
     Dosage: 30 MILLIGRAM
     Route: 048
     Dates: start: 20110119, end: 20110123
  10. LEVOFLOXACIN [Concomitant]
     Dosage: 400 MILLIGRAM
     Route: 048
     Dates: start: 20110119
  11. TRUVADA [Concomitant]
     Indication: HIV INFECTION
     Dosage: 1 TABLET
     Route: 048
     Dates: start: 20110119
  12. ALLOPURINOL [Concomitant]
     Dosage: 100 MILLIGRAM
     Route: 048
     Dates: start: 20110119
  13. SULFAMETHOXAZOLE [Concomitant]
     Indication: PROPHYLAXIS
     Dosage: 2 TABLET
     Route: 048
     Dates: start: 20110119
  14. REVLIMID [Suspect]
     Dosage: 25 MILLIGRAM
     Route: 048
  15. BIOFERMN R [Concomitant]
     Indication: PROPHYLAXIS
     Dosage: 2 TABLET
     Route: 048
     Dates: start: 20110119

REACTIONS (6)
  - INTESTINAL PERFORATION [None]
  - NEUTROPENIA [None]
  - INFECTIOUS PERITONITIS [None]
  - HEPATIC FUNCTION ABNORMAL [None]
  - DIVERTICULITIS [None]
  - ERYTHEMA [None]
